FAERS Safety Report 5211931-7 (Version None)
Quarter: 2007Q2

REPORT INFORMATION
  Report Type: 
  Country: None (occurrence: None)
  Receive Date: 20070118
  Receipt Date: 20070105
  Transmission Date: 20071010
  Serious: Yes (Other)
  Sender: FDA-Public Use
  Company Number: 2007GB00017

PATIENT
  Age: 12 Year
  Sex: Female

DRUGS (8)
  1. MEROPENEM [Suspect]
     Indication: EMPYEMA
     Route: 042
     Dates: start: 20051218, end: 20051222
  2. AUGMENTIN '125' [Suspect]
     Route: 042
     Dates: start: 20051201, end: 20051203
  3. CEFOTAXIME SODIUM [Suspect]
     Indication: EMPYEMA
     Route: 042
     Dates: start: 20051203, end: 20051218
  4. FLAGYL [Suspect]
     Route: 042
     Dates: start: 20051203, end: 20051218
  5. FLUCLOXACILLIN [Suspect]
     Route: 042
     Dates: start: 20051203, end: 20051218
  6. FLUTICASONE PROPIONATE [Concomitant]
     Indication: SINUSITIS
     Route: 045
     Dates: start: 20051203
  7. PARACETAMOL [Concomitant]
     Indication: PYREXIA
     Dates: start: 20051201
  8. PIRITON [Concomitant]

REACTIONS (7)
  - ALANINE AMINOTRANSFERASE INCREASED [None]
  - ERYTHEMA [None]
  - NEUTROPENIA [None]
  - OEDEMA [None]
  - PYREXIA [None]
  - RASH [None]
  - THROMBOCYTOPENIA [None]
